FAERS Safety Report 6711388-0 (Version None)
Quarter: 2010Q2

REPORT INFORMATION
  Report Type: 
  Country: None (occurrence: None)
  Receive Date: 20100505
  Receipt Date: 20100423
  Transmission Date: 20101027
  Serious: No
  Sender: FDA-Public Use
  Company Number: US-JNJFOC-20100407561

PATIENT
  Sex: Female
  Weight: 63.5 kg

DRUGS (3)
  1. DURAGESIC-100 [Suspect]
     Indication: BACK PAIN
     Route: 062
  2. BLOOD PRESSURE MEDICATION NOS [Concomitant]
     Indication: HYPERTENSION
     Route: 048
  3. LYRICA [Concomitant]
     Indication: NEURALGIA
     Route: 048

REACTIONS (2)
  - DRUG INEFFECTIVE [None]
  - EXPIRED DRUG ADMINISTERED [None]
